FAERS Safety Report 9450634 (Version 1)
Quarter: 2013Q3

REPORT INFORMATION
  Report Type: Spontaneous
  Country: IL (occurrence: None)
  Receive Date: 20130807
  Receipt Date: 20130807
  Transmission Date: 20140515
  Serious: Yes (Other)
  Sender: FDA-Public Use
  Company Number: FK201302974

PATIENT
  Sex: 0

DRUGS (1)
  1. LEVETIRACETAM (MANUFACTURER UNKNOWN) (LEVETIRACETAM) (LEVETIRACETAM) [Suspect]
     Indication: EPILEPSY

REACTIONS (1)
  - Suicidal ideation [None]
